FAERS Safety Report 11703613 (Version 1)
Quarter: 2015Q4

REPORT INFORMATION
  Report Type: Spontaneous
  Country: GB (occurrence: GB)
  Receive Date: 20151105
  Receipt Date: 20151105
  Transmission Date: 20160304
  Serious: Yes (Death, Other)
  Sender: FDA-Public Use
  Company Number: GB-ALEMBIC PHARMACUETICALS LIMITED-2015SCAL000788

PATIENT

DRUGS (2)
  1. PIMAVANSERIN [Concomitant]
     Active Substance: PIMAVANSERIN
     Indication: PARKINSON^S DISEASE PSYCHOSIS
     Dosage: 40 MG, QD
  2. QUETIAPINE FUMARATE. [Suspect]
     Active Substance: QUETIAPINE FUMARATE
     Indication: PARKINSON^S DISEASE PSYCHOSIS
     Dosage: 25 TO 50 MG DAILY (RANGE 12.5-350 MG)

REACTIONS (14)
  - Cerebrovascular accident [Unknown]
  - Fall [Unknown]
  - Product use issue [Unknown]
  - Oedema [Unknown]
  - Orthostatic hypotension [Unknown]
  - Embolism [Unknown]
  - Blood disorder [Unknown]
  - Cognitive disorder [Unknown]
  - Seizure [Unknown]
  - Infection [Unknown]
  - Metabolic disorder [Unknown]
  - Death [Fatal]
  - Extrapyramidal disorder [Unknown]
  - Sedation [Unknown]
